FAERS Safety Report 6449906-2 (Version None)
Quarter: 2009Q4

REPORT INFORMATION
  Report Type: 
  Country: None (occurrence: None)
  Receive Date: 20091123
  Receipt Date: 20091116
  Transmission Date: 20100525
  Serious: Yes (Hospitalization)
  Sender: FDA-Public Use
  Company Number: US-BIOGENIDEC-2009BI023280

PATIENT
  Age: 31 Year
  Sex: Male

DRUGS (2)
  1. TYSABRI [Suspect]
     Indication: MULTIPLE SCLEROSIS
     Route: 042
     Dates: start: 20080421
  2. STEROIDS (NOS) [Concomitant]
     Indication: MULTIPLE SCLEROSIS

REACTIONS (4)
  - ABASIA [None]
  - ARTHROPATHY [None]
  - BONE PAIN [None]
  - OSTEONECROSIS [None]
